FAERS Safety Report 25868008 (Version 4)
Quarter: 2025Q4

REPORT INFORMATION
  Report Type: Spontaneous
  Country: US (occurrence: US)
  Receive Date: 20251001
  Receipt Date: 20251218
  Transmission Date: 20260118
  Serious: Yes (Hospitalization)
  Sender: ELI LILLY AND COMPANY
  Company Number: US-ELI_LILLY_AND_COMPANY-US202509004585

PATIENT
  Age: 81 Year
  Sex: Male

DRUGS (2)
  1. ZEPBOUND [Suspect]
     Active Substance: TIRZEPATIDE
     Indication: Type 2 diabetes mellitus
     Dosage: 2.5 MG, UNKNOWN
     Route: 058
     Dates: start: 20250827
  2. ZEPBOUND [Suspect]
     Active Substance: TIRZEPATIDE
     Dosage: 2.5 MG, UNKNOWN
     Route: 058
     Dates: end: 20250902

REACTIONS (15)
  - Hiccups [Recovered/Resolved]
  - Colitis [Unknown]
  - Off label use [Unknown]
  - Insomnia [Unknown]
  - Blood glucose increased [Not Recovered/Not Resolved]
  - Oropharyngeal pain [Recovering/Resolving]
  - Testicular swelling [Recovering/Resolving]
  - Feeling cold [Unknown]
  - Balance disorder [Recovering/Resolving]
  - Ageusia [Unknown]
  - Weight decreased [Unknown]
  - Nausea [Recovering/Resolving]
  - Vomiting [Not Recovered/Not Resolved]
  - Malaise [Unknown]
  - Drug hypersensitivity [Unknown]

NARRATIVE: CASE EVENT DATE: 20250827
